FAERS Safety Report 6644031-X (Version None)
Quarter: 2010Q1

REPORT INFORMATION
  Report Type: 
  Country: None (occurrence: None)
  Receive Date: 20100319
  Receipt Date: 20100319
  Transmission Date: 20100710
  Serious: Yes (Other)
  Sender: FDA-Public Use
  Company Number: None

PATIENT
  Sex: Female
  Weight: 67.586 kg

DRUGS (1)
  1. CEPHALEXIN [Suspect]
     Indication: BACTERIAL INFECTION
     Dosage: 3X ADAY
     Dates: start: 20100303, end: 20100305

REACTIONS (4)
  - BODY TEMPERATURE DECREASED [None]
  - BODY TEMPERATURE INCREASED [None]
  - HYPOAESTHESIA [None]
  - SHOCK [None]
